FAERS Safety Report 5745982-0 (Version None)
Quarter: 2008Q2

REPORT INFORMATION
  Report Type: 
  Country: None (occurrence: None)
  Receive Date: 20080520
  Receipt Date: 20080502
  Transmission Date: 20081010
  Serious: Yes (Hospitalization)
  Sender: FDA-Public Use
  Company Number: 2008AL003212

PATIENT
  Age: 77 Year
  Sex: Male
  Weight: 102.5129 kg

DRUGS (2)
  1. DIGOXIN [Suspect]
     Indication: CARDIAC DISORDER
     Dosage: 0.25 MG DAILY PO
     Route: 048
  2. COUMADIN [Concomitant]

REACTIONS (1)
  - HEART RATE INCREASED [None]
